FAERS Safety Report 5546367-2 (Version None)
Quarter: 2007Q4

REPORT INFORMATION
  Report Type: 
  Country: None (occurrence: None)
  Receive Date: 20071206
  Receipt Date: 20071206
  Transmission Date: 20080405
  Serious: Yes (Hospitalization)
  Sender: FDA-Public Use
  Company Number: None

PATIENT
  Sex: Male
  Weight: 87.5442 kg

DRUGS (3)
  1. CAPECITABINE [Suspect]
     Indication: OESOPHAGEAL CARCINOMA
     Dosage: 1500 MG 2XD ORAL
     Route: 048
     Dates: start: 20071113, end: 20071122
  2. OXALIPLATIN [Suspect]
     Indication: OESOPHAGEAL CARCINOMA
     Dosage: 98.5 MG D1, D8 IV
     Route: 042
     Dates: start: 20071113, end: 20071120
  3. TAXOTERE [Concomitant]

REACTIONS (9)
  - BLOOD POTASSIUM DECREASED [None]
  - BLOOD UREA INCREASED [None]
  - DEHYDRATION [None]
  - DIARRHOEA [None]
  - FEBRILE NEUTROPENIA [None]
  - INTERNATIONAL NORMALISED RATIO INCREASED [None]
  - MUCOSAL INFLAMMATION [None]
  - OESOPHAGITIS [None]
  - PYREXIA [None]
